FAERS Safety Report 14046426 (Version 6)
Quarter: 2018Q2

REPORT INFORMATION
  Report Type: Spontaneous
  Country: JP (occurrence: JP)
  Receive Date: 20171005
  Receipt Date: 20180614
  Transmission Date: 20180711
  Serious: Yes (Life-Threatening, Other)
  Sender: FDA-Public Use
  Company Number: JP-ACTELION-A-CH2017-160266

PATIENT
  Age: 80 Year
  Sex: Female
  Weight: 33 kg

DRUGS (20)
  1. OPSUMIT [Suspect]
     Active Substance: MACITENTAN
     Indication: PULMONARY ARTERIAL HYPERTENSION
     Dosage: 10 MG, QD
     Route: 048
     Dates: start: 20170905, end: 20170915
  2. ALLOPURINOL. [Concomitant]
     Active Substance: ALLOPURINOL
     Indication: HYPERURICAEMIA
     Dosage: 100 MG, QD
     Route: 048
     Dates: end: 20170907
  3. UPTRAVI [Suspect]
     Active Substance: SELEXIPAG
     Dosage: 0.2 MG, OD
     Route: 048
     Dates: start: 20170910, end: 20170914
  4. MAINTATE [Concomitant]
     Active Substance: BISOPROLOL FUMARATE
     Dosage: 0.625 MG, QD
     Route: 048
     Dates: end: 20170907
  5. SAMSCA [Concomitant]
     Active Substance: TOLVAPTAN
     Dosage: 15 MG, QD
     Route: 048
     Dates: start: 20141114, end: 20170915
  6. FENELMIN [Concomitant]
     Indication: ANAEMIA
     Dosage: 200 MG, QD
     Route: 048
     Dates: end: 20170907
  7. NORADRENALINE [Concomitant]
     Active Substance: NOREPINEPHRINE
     Indication: DEVICE RELATED INFECTION
     Dosage: UNK
     Route: 042
     Dates: start: 20170908, end: 20171001
  8. WARFARIN [Concomitant]
     Active Substance: WARFARIN
     Dosage: 2.5 MG, QD
     Route: 048
     Dates: end: 20170906
  9. DOBUPUM [Concomitant]
     Active Substance: DOBUTAMINE HYDROCHLORIDE
     Dosage: UNK
     Route: 042
     Dates: start: 20170821, end: 20171027
  10. LASIX [Concomitant]
     Active Substance: FUROSEMIDE
     Dosage: 100 MG, QD
     Route: 042
     Dates: start: 20170826, end: 20170916
  11. ZOSYN [Concomitant]
     Active Substance: PIPERACILLIN SODIUM\TAZOBACTAM SODIUM
     Indication: DEVICE RELATED INFECTION
     Dosage: 3 G, QD
     Route: 042
     Dates: start: 20170907, end: 20170920
  12. OXYGEN. [Concomitant]
     Active Substance: OXYGEN
  13. UPTRAVI [Suspect]
     Active Substance: SELEXIPAG
     Indication: PULMONARY ARTERIAL HYPERTENSION
     Dosage: 0.2 MG, BID
     Route: 048
     Dates: start: 20170828, end: 20170909
  14. COVERSYL [Concomitant]
     Active Substance: PERINDOPRIL
     Dosage: 1 MG, QD
     Route: 048
     Dates: end: 20170907
  15. RABEPRAZOLE [Concomitant]
     Active Substance: RABEPRAZOLE
     Indication: SMALL INTESTINAL HAEMORRHAGE
     Dosage: 10 MG, QD
     Route: 048
     Dates: end: 20170907
  16. NIFEDIPINE. [Concomitant]
     Active Substance: NIFEDIPINE
     Dosage: 20 MG, QD
     Route: 048
     Dates: start: 20170822
  17. CUBICIN [Concomitant]
     Active Substance: DAPTOMYCIN
     Indication: DEVICE RELATED INFECTION
     Dosage: 240 MG, QD
     Route: 042
     Dates: start: 20170824, end: 20170827
  18. UNASYN S [Concomitant]
     Active Substance: AMPICILLIN SODIUM\SULBACTAM SODIUM
     Indication: DEVICE RELATED INFECTION
     Dosage: 3 DF, QD
     Route: 042
     Dates: start: 20170823, end: 20170907
  19. BISOPROLOL FUMARATE. [Concomitant]
     Active Substance: BISOPROLOL FUMARATE
  20. CLARITIN [Concomitant]
     Active Substance: LORATADINE
     Indication: RHINITIS ALLERGIC
     Dosage: 10 MG, QD
     Dates: end: 20170907

REACTIONS (11)
  - Pyrexia [Recovering/Resolving]
  - Plasmapheresis [Unknown]
  - Platelet transfusion [Unknown]
  - Renal impairment [Recovering/Resolving]
  - Brain natriuretic peptide increased [Unknown]
  - Transfusion [Unknown]
  - Platelet count decreased [Recovering/Resolving]
  - Altered state of consciousness [Recovering/Resolving]
  - Thrombotic thrombocytopenic purpura [Recovering/Resolving]
  - Sepsis [Recovered/Resolved]
  - Microangiopathic haemolytic anaemia [Recovering/Resolving]

NARRATIVE: CASE EVENT DATE: 20170912
